FAERS Safety Report 19276297 (Version 1)
Quarter: 2021Q2

REPORT INFORMATION
  Report Type: Spontaneous
  Country: US (occurrence: US)
  Receive Date: 20210519
  Receipt Date: 20210519
  Transmission Date: 20210717
  Serious: No
  Sender: FDA-Public Use
  Company Number: US-IGSA-BIG0014486

PATIENT
  Sex: Male

DRUGS (2)
  1. GAMUNEX?C [Suspect]
     Active Substance: HUMAN IMMUNOGLOBULIN G
     Indication: ENCEPHALITIS
     Dosage: 25 GRAM, Q.4WK.
     Route: 042
     Dates: start: 20200725
  2. GAMUNEX?C [Suspect]
     Active Substance: HUMAN IMMUNOGLOBULIN G
     Indication: ENCEPHALOMYELITIS

REACTIONS (2)
  - Urticaria [Recovered/Resolved]
  - Wheezing [Recovered/Resolved]
